FAERS Safety Report 7597084-9 (Version None)
Quarter: 2011Q3

REPORT INFORMATION
  Report Type: 
  Country: None (occurrence: None)
  Receive Date: 20110708
  Receipt Date: 20110628
  Transmission Date: 20111222
  Serious: Yes (Hospitalization)
  Sender: FDA-Public Use
  Company Number: DE-ALEXION-A201101000

PATIENT
  Sex: Male

DRUGS (6)
  1. SOLIRIS [Suspect]
     Indication: HAEMOLYTIC URAEMIC SYNDROME
     Dosage: 900 MG, QW
     Route: 042
     Dates: start: 20110601
  2. PANTOPRAZOLE [Concomitant]
     Indication: PROPHYLAXIS AGAINST GASTROINTESTINAL ULCER
     Dosage: PRN
     Route: 048
  3. ASPIRIN [Concomitant]
     Indication: THROMBOSIS PROPHYLAXIS
     Dosage: 100 MG, QD
     Route: 048
  4. AMLODIPINE [Concomitant]
     Indication: HYPERTENSION
     Dosage: 50 MG, QD
     Route: 048
  5. MUTAFLOR [Concomitant]
     Indication: PROBIOTIC THERAPY
     Dosage: 2 CAPSULES
     Route: 048
  6. URAPIDIL [Concomitant]
     Indication: HYPERTENSION
     Dosage: 90 MG, QD
     Route: 048

REACTIONS (3)
  - ABDOMINAL PAIN [None]
  - LEUKOPENIA [None]
  - PYREXIA [None]
